FAERS Safety Report 16949161 (Version 1)
Quarter: 2019Q4

REPORT INFORMATION
  Report Type: Spontaneous
  Country: US (occurrence: US)
  Receive Date: 20191023
  Receipt Date: 20191023
  Transmission Date: 20200122
  Serious: No
  Sender: FDA-Public Use
  Company Number: US-009507513-1910USA013010

PATIENT
  Sex: Male

DRUGS (1)
  1. INTRON A [Suspect]
     Active Substance: INTERFERON ALFA-2B
     Dosage: DOSE: 1000000 UNITS, FREQUENCY: MON,WED, FRI, STRENGTH: 6 MMU/ML
     Route: 058
     Dates: start: 20190927

REACTIONS (1)
  - Fatigue [Unknown]
